FAERS Safety Report 7944748-0 (Version None)
Quarter: 2011Q4

REPORT INFORMATION
  Report Type: 
  Country: None (occurrence: None)
  Receive Date: 20111129
  Receipt Date: 20111118
  Transmission Date: 20120403
  Serious: Yes (Other)
  Sender: FDA-Public Use
  Company Number: CA-JNJFOC-20111108828

PATIENT
  Sex: Male
  Weight: 93 kg

DRUGS (4)
  1. REMICADE [Suspect]
     Route: 042
     Dates: start: 20110916
  2. REMICADE [Suspect]
     Indication: CROHN'S DISEASE
     Route: 042
     Dates: start: 20110609
  3. CALCIUM [Concomitant]
     Route: 048
  4. VITAMIN D [Concomitant]
     Route: 048

REACTIONS (3)
  - ENTERITIS [None]
  - HYPOAESTHESIA [None]
  - FATIGUE [None]
